FAERS Safety Report 23462981 (Version 4)
Quarter: 2024Q2

REPORT INFORMATION
  Report Type: Report from Study
  Country: CA (occurrence: CA)
  Receive Date: 20240131
  Receipt Date: 20240429
  Transmission Date: 20240716
  Serious: Yes (Other)
  Sender: FDA-Public Use
  Company Number: CA-BAUSCH-BL-2024-001372

PATIENT
  Age: 55 Year
  Sex: Female
  Weight: 92.971 kg

DRUGS (12)
  1. CONTRAVE [Suspect]
     Active Substance: BUPROPION HYDROCHLORIDE\NALTREXONE HYDROCHLORIDE
     Indication: Weight control
     Dosage: 90/8 MG, 1 TABLET Q AM
     Route: 048
     Dates: start: 20231215, end: 20231221
  2. CONTRAVE [Suspect]
     Active Substance: BUPROPION HYDROCHLORIDE\NALTREXONE HYDROCHLORIDE
     Dosage: 90/8 MG, 1 TABLET Q AM, 1 TABLET Q PM
     Route: 048
     Dates: start: 20231222, end: 20231228
  3. CONTRAVE [Suspect]
     Active Substance: BUPROPION HYDROCHLORIDE\NALTREXONE HYDROCHLORIDE
     Dosage: 90/8 MG, 2 TABLETS Q AM, 1 TABLET QPM
     Route: 048
     Dates: start: 20231229, end: 20240104
  4. CONTRAVE [Suspect]
     Active Substance: BUPROPION HYDROCHLORIDE\NALTREXONE HYDROCHLORIDE
     Dosage: 90/8 MG, 2 TABLETS Q AM, 2 TABLETS QPM
     Route: 048
     Dates: start: 20240105, end: 20240127
  5. ESTRADIOL [Concomitant]
     Active Substance: ESTRADIOL
     Indication: Menopause
     Dosage: 75 MG,1 IN 1 D
     Route: 062
     Dates: end: 20240123
  6. ESTRADIOL [Concomitant]
     Active Substance: ESTRADIOL
     Dosage: 100 MG,1 IN 1 D
     Route: 062
     Dates: start: 20240124
  7. ESTRADIOL [Concomitant]
     Active Substance: ESTRADIOL
     Dosage: FREQUENCY- TWICE A WEEK (100 MG)
     Route: 062
  8. SYMBICORT [Concomitant]
     Active Substance: BUDESONIDE\FORMOTEROL FUMARATE DIHYDRATE
     Indication: Product used for unknown indication
     Dosage: 2 INHALATIONS TWICE DAILY (1 IN 12 HR)
  9. LEVOTHYROXINE SODIUM [Concomitant]
     Active Substance: LEVOTHYROXINE SODIUM
     Indication: Product used for unknown indication
     Dosage: 0.075 MCG,1 IN 1 D
  10. AMLODIPINE BESYLATE [Concomitant]
     Active Substance: AMLODIPINE BESYLATE
     Indication: Product used for unknown indication
     Dosage: TAKE 1 ? TABLETS BY MOUTH ONCE DAILY (5 MG,1 IN 1 D)
     Route: 048
  11. PROGESTERONE [Concomitant]
     Active Substance: PROGESTERONE
     Indication: Product used for unknown indication
     Dosage: 100 MG,1 IN 1 D
     Route: 048
  12. ESTRADIOL [Concomitant]
     Active Substance: ESTRADIOL
     Indication: Product used for unknown indication
     Dosage: FREQUENCY- TWICE WEEKLY (10 MCG)
     Route: 067

REACTIONS (8)
  - Vitreous detachment [Recovered/Resolved]
  - Menopausal symptoms [Recovered/Resolved]
  - Photophobia [Recovered/Resolved]
  - Vision blurred [Recovered/Resolved]
  - Insomnia [Recovered/Resolved]
  - Nausea [Recovered/Resolved]
  - Headache [Recovered/Resolved]
  - Vertigo [Recovered/Resolved]

NARRATIVE: CASE EVENT DATE: 20231201
